FAERS Safety Report 19440386 (Version 1)
Quarter: 2021Q2

REPORT INFORMATION
  Report Type: Spontaneous
  Country: US (occurrence: US)
  Receive Date: 20210621
  Receipt Date: 20210621
  Transmission Date: 20210717
  Serious: No
  Sender: FDA-Public Use
  Company Number: US-SA-2021SA198331

PATIENT
  Age: 36 Year
  Sex: Female

DRUGS (31)
  1. DUPIXENT [Suspect]
     Active Substance: DUPILUMAB
     Indication: DERMATITIS
     Dosage: 300 MG, QOW
     Route: 058
     Dates: start: 20210505
  2. SYMBICORT [Concomitant]
     Active Substance: BUDESONIDE\FORMOTEROL FUMARATE DIHYDRATE
  3. VITAMIN D3 [Concomitant]
     Active Substance: CHOLECALCIFEROL
  4. SPIRONOLACTONE. [Concomitant]
     Active Substance: SPIRONOLACTONE
  5. CLARINEX?D [Concomitant]
     Active Substance: DESLORATADINE\PSEUDOEPHEDRINE SULFATE
  6. IPRATROPIUM [Concomitant]
     Active Substance: IPRATROPIUM
  7. EVENING PRIMOSE OIL [Concomitant]
  8. FORADIL [Concomitant]
     Active Substance: FORMOTEROL FUMARATE
  9. LIOTHYRONINE [Concomitant]
     Active Substance: LIOTHYRONINE
  10. MUPIROCIN. [Concomitant]
     Active Substance: MUPIROCIN
  11. FERROUS SULFATE. [Concomitant]
     Active Substance: FERROUS SULFATE
  12. VENTOLIN HFA [Concomitant]
     Active Substance: ALBUTEROL SULFATE
  13. BYETTA [Concomitant]
     Active Substance: EXENATIDE
  14. CYANOCOBALAMIN. [Concomitant]
     Active Substance: CYANOCOBALAMIN
  15. CALCIUM [Concomitant]
     Active Substance: CALCIUM
  16. MONTELUKAST [Concomitant]
     Active Substance: MONTELUKAST SODIUM
  17. PULMICORT TURBUHALER [Concomitant]
     Active Substance: BUDESONIDE
  18. AZELASTINE;FLUTICASONE [Concomitant]
     Active Substance: AZELASTINE HYDROCHLORIDE\FLUTICASONE PROPIONATE
  19. BUDESONIDE;FORMOTEROL FUMARATE [Concomitant]
     Active Substance: BUDESONIDE\FORMOTEROL FUMARATE
  20. LOW?OGESTREL [Concomitant]
     Active Substance: ETHINYL ESTRADIOL\NORGESTREL
  21. PHENTERMINE. [Concomitant]
     Active Substance: PHENTERMINE
  22. DULOXETINE. [Concomitant]
     Active Substance: DULOXETINE
  23. TOPAMAX [Concomitant]
     Active Substance: TOPIRAMATE
  24. ALBUTEROL [SALBUTAMOL] [Concomitant]
     Active Substance: ALBUTEROL
  25. FLONASE [Concomitant]
     Active Substance: FLUTICASONE PROPIONATE
  26. MINOCYCLINE [Concomitant]
     Active Substance: MINOCYCLINE HYDROCHLORIDE
  27. VITAMIN C [Concomitant]
     Active Substance: ASCORBIC ACID
  28. BIOTIN [Concomitant]
     Active Substance: BIOTIN
  29. BUPROPION. [Concomitant]
     Active Substance: BUPROPION
  30. JANUMET [Concomitant]
     Active Substance: METFORMIN HYDROCHLORIDE\SITAGLIPTIN PHOSPHATE
  31. CRYSELLE [Concomitant]
     Active Substance: ETHINYL ESTRADIOL\NORGESTREL

REACTIONS (3)
  - Pruritus [Unknown]
  - Product use in unapproved indication [Unknown]
  - Therapeutic response shortened [Unknown]

NARRATIVE: CASE EVENT DATE: 2021
